FAERS Safety Report 5619232-X (Version None)
Quarter: 2008Q1

REPORT INFORMATION
  Report Type: 
  Country: None (occurrence: None)
  Receive Date: 20080205
  Receipt Date: 20080129
  Transmission Date: 20080703
  Serious: Yes (Other)
  Sender: FDA-Public Use
  Company Number: 08022396

PATIENT
  Age: 66 Year
  Sex: Male

DRUGS (4)
  1. WARFARIN SODIUM [Suspect]
     Indication: MITRAL VALVE REPLACEMENT
  2. LOPINAVIR AND RITONAVIR [Suspect]
  3. ZIDOVUDINE (AZIDOTHYMIDINE) [Concomitant]
  4. LAMIVUDINE [Concomitant]

REACTIONS (1)
  - DRUG EFFECT DECREASED [None]
